FAERS Safety Report 16281167 (Version 4)
Quarter: 2019Q3

REPORT INFORMATION
  Report Type: Report from Study
  Country: None (occurrence: RO)
  Receive Date: 20190507
  Receipt Date: 20190801
  Transmission Date: 20191004
  Serious: Yes (Death, Hospitalization, Other)
  Sender: FDA-Public Use
  Company Number: RO-ABBVIE-19S-135-2771564-00

PATIENT
  Age: 71 Year
  Sex: Male

DRUGS (1)
  1. DUODOPA [Suspect]
     Active Substance: CARBIDOPA\LEVODOPA
     Indication: PARKINSON^S DISEASE
     Dosage: DM=8.00 DC=5.80 ED=3.30 NRED=2; ?STRENGTH:- 20 MG/ML 5 MG/ML
     Route: 050
     Dates: start: 20170301

REACTIONS (12)
  - Acute kidney injury [Fatal]
  - Pyelonephritis [Recovered/Resolved]
  - Speech disorder [Not Recovered/Not Resolved]
  - Weight decreased [Not Recovered/Not Resolved]
  - Cardiac failure congestive [Fatal]
  - Dysphagia [Not Recovered/Not Resolved]
  - Ischaemic cardiomyopathy [Fatal]
  - Cardio-respiratory arrest [Fatal]
  - Chronic obstructive pulmonary disease [Fatal]
  - Lower respiratory tract infection [Fatal]
  - Pneumonia aspiration [Recovered/Resolved]
  - Hypertension [Unknown]

NARRATIVE: CASE EVENT DATE: 20190501
